FAERS Safety Report 6560929-5 (Version None)
Quarter: 2010Q1

REPORT INFORMATION
  Report Type: 
  Country: None (occurrence: None)
  Receive Date: 20100129
  Receipt Date: 20091001
  Transmission Date: 20100710
  Serious: No
  Sender: FDA-Public Use
  Company Number: US-ABBOTT-09P-163-0600376-00

PATIENT
  Sex: Male
  Weight: 77.18 kg

DRUGS (3)
  1. HUMIRA [Suspect]
     Indication: CROHN'S DISEASE
     Dates: start: 20090914, end: 20090914
  2. HUMIRA [Suspect]
     Dosage: 80MG DAY 15
     Dates: start: 20090928, end: 20090928
  3. HUMIRA [Suspect]

REACTIONS (1)
  - STOMATITIS [None]
